FAERS Safety Report 24998797 (Version 3)
Quarter: 2025Q3

REPORT INFORMATION
  Report Type: Spontaneous
  Country: EU (occurrence: EU)
  Receive Date: 20250222
  Receipt Date: 20250809
  Transmission Date: 20251020
  Serious: Yes (Other)
  Sender: ALEXION PHARMACEUTICALS
  Company Number: EU-BESINS-2025-00426

PATIENT
  Age: 67 Year
  Sex: Female
  Weight: 80 kg

DRUGS (6)
  1. ROSUVASTATIN [Suspect]
     Active Substance: ROSUVASTATIN
     Indication: Blood cholesterol increased
     Dosage: 10 MILLIGRAM, QD
     Route: 065
  2. PROGESTERONE [Suspect]
     Active Substance: PROGESTERONE
     Indication: Menopausal symptoms
  3. PROGESTERONE [Suspect]
     Active Substance: PROGESTERONE
     Indication: Hormone therapy
  4. ESTRADIOL [Suspect]
     Active Substance: ESTRADIOL
     Indication: Menopausal symptoms
     Dosage: 2 DOSAGE FORM, QD
     Route: 065
  5. ESTRADIOL [Suspect]
     Active Substance: ESTRADIOL
     Indication: Hormone therapy
     Dosage: 0.5 UNK, 1/DAY
     Route: 065
  6. ESTRADIOL [Suspect]
     Active Substance: ESTRADIOL
     Dosage: 1 DOSAGE FORM, QD
     Route: 065

REACTIONS (5)
  - Postmenopausal haemorrhage [Not Recovered/Not Resolved]
  - Alopecia [Unknown]
  - Skin wrinkling [Unknown]
  - Hair growth abnormal [Unknown]
  - Endometrial thickening [Unknown]
